FAERS Safety Report 18888322 (Version 2)
Quarter: 2021Q3

REPORT INFORMATION
  Report Type: Spontaneous
  Country: US (occurrence: US)
  Receive Date: 20210213
  Receipt Date: 20210826
  Transmission Date: 20211014
  Serious: Yes (Hospitalization)
  Sender: FDA-Public Use
  Company Number: US-SA-2021SA044462

PATIENT
  Sex: Female
  Weight: 95 kg

DRUGS (13)
  1. TRELEGY ELLIPTA [Concomitant]
     Active Substance: FLUTICASONE FUROATE\UMECLIDINIUM BROMIDE\VILANTEROL TRIFENATATE
     Route: 065
  2. DUPIXENT [Suspect]
     Active Substance: DUPILUMAB
     Indication: ILLNESS
     Dosage: 300 MG, QOW
     Route: 058
  3. DUPIXENT [Suspect]
     Active Substance: DUPILUMAB
     Indication: DERMATITIS ATOPIC
     Dosage: 400 MG, 1X
     Route: 058
     Dates: start: 20210118, end: 20210118
  4. XYZAL [Concomitant]
     Active Substance: LEVOCETIRIZINE DIHYDROCHLORIDE
     Dosage: 5 MG
     Route: 065
  5. FAMOTIDINE. [Concomitant]
     Active Substance: FAMOTIDINE
     Dosage: 40 MG
     Route: 065
  6. CLOBETASOL [Concomitant]
     Active Substance: CLOBETASOL
     Dosage: 0.05 %
     Route: 065
  7. ALBUTEROL HFA [Concomitant]
     Active Substance: ALBUTEROL SULFATE
     Dosage: 90 UG
  8. XARELTO [Concomitant]
     Active Substance: RIVAROXABAN
     Dosage: 10 MG
     Route: 065
  9. NEOMYCIN AND POLYMYXIN B SULFATES, BACITRACIN [Concomitant]
     Active Substance: BACITRACIN\NEOMYCIN\POLYMYXIN B SULFATE
     Dosage: UNK
     Route: 065
  10. HYDROXYZINE HCL [Concomitant]
     Active Substance: HYDROXYZINE HYDROCHLORIDE
     Dosage: 25 MG
     Route: 065
  11. MONTELUKAST SODIUM. [Concomitant]
     Active Substance: MONTELUKAST SODIUM
     Dosage: 10 MG
     Route: 065
  12. GABAPENTIN. [Concomitant]
     Active Substance: GABAPENTIN
     Dosage: 300 MG
     Route: 065
  13. VENTOLIN HFA [Concomitant]
     Active Substance: ALBUTEROL SULFATE
     Route: 065

REACTIONS (3)
  - Off label use [Unknown]
  - Product use in unapproved indication [Unknown]
  - Hospitalisation [Unknown]

NARRATIVE: CASE EVENT DATE: 2021
